FAERS Safety Report 20197502 (Version 1)
Quarter: 2021Q4

REPORT INFORMATION
  Report Type: Spontaneous
  Country: US (occurrence: US)
  Receive Date: 20211217
  Receipt Date: 20211217
  Transmission Date: 20220304
  Serious: No
  Sender: FDA-Public Use
  Company Number: US-PACIRA-2021000303

PATIENT
  Age: 45 Year
  Sex: Female

DRUGS (2)
  1. EXPAREL [Suspect]
     Active Substance: BUPIVACAINE
     Dosage: 20 ML, SINGLE DOSE
     Route: 050
     Dates: start: 20210527, end: 20210527
  2. LIDOCAINE [Suspect]
     Active Substance: LIDOCAINE
     Dosage: 6 ML
     Route: 050
     Dates: start: 20210527, end: 20210527

REACTIONS (1)
  - Labelled drug-drug interaction medication error [Not Recovered/Not Resolved]

NARRATIVE: CASE EVENT DATE: 20210527
